FAERS Safety Report 13072866 (Version 2)
Quarter: 2018Q1

REPORT INFORMATION
  Report Type: Spontaneous
  Country: US (occurrence: US)
  Receive Date: 20161229
  Receipt Date: 20180115
  Transmission Date: 20180508
  Serious: Yes (Other)
  Sender: FDA-Public Use
  Company Number: US-SA-2016SA211782

PATIENT
  Age: 67 Year
  Sex: Female
  Weight: 86.18 kg

DRUGS (14)
  1. TAXOTERE [Suspect]
     Active Substance: DOCETAXEL
     Indication: BREAST CANCER FEMALE
     Route: 051
     Dates: start: 20130411, end: 20130411
  2. CRESTOR [Concomitant]
     Active Substance: ROSUVASTATIN CALCIUM
     Route: 065
     Dates: start: 2010
  3. NEXIUM [Concomitant]
     Active Substance: ESOMEPRAZOLE MAGNESIUM
     Route: 065
     Dates: start: 2010
  4. DIOVAN [Concomitant]
     Active Substance: VALSARTAN
     Route: 065
     Dates: start: 2010
  5. ADRIAMYCIN [Concomitant]
     Active Substance: DOXORUBICIN HYDROCHLORIDE
     Route: 065
     Dates: start: 20121213, end: 20121213
  6. COREG [Concomitant]
     Active Substance: CARVEDILOL
     Route: 065
     Dates: start: 2010
  7. CYTOXAN [Concomitant]
     Active Substance: CYCLOPHOSPHAMIDE
     Route: 065
     Dates: start: 20121213, end: 20121213
  8. SYNTHROID [Concomitant]
     Active Substance: LEVOTHYROXINE SODIUM
     Route: 065
     Dates: start: 2010
  9. TAXOTERE [Suspect]
     Active Substance: DOCETAXEL
     Indication: BREAST CANCER FEMALE
     Route: 051
     Dates: start: 20121213, end: 20121213
  10. ADRIAMYCIN [Concomitant]
     Active Substance: DOXORUBICIN HYDROCHLORIDE
     Route: 065
     Dates: start: 20130411, end: 20130411
  11. NEOSAR [Concomitant]
     Active Substance: CYCLOPHOSPHAMIDE
  12. LEXAPRO [Concomitant]
     Active Substance: ESCITALOPRAM OXALATE
     Route: 065
     Dates: start: 2010
  13. EVISTA [Concomitant]
     Active Substance: RALOXIFENE HYDROCHLORIDE
     Route: 065
     Dates: start: 2010
  14. CYTOXAN [Concomitant]
     Active Substance: CYCLOPHOSPHAMIDE
     Route: 065
     Dates: start: 20130411, end: 20130411

REACTIONS (5)
  - Alopecia [Not Recovered/Not Resolved]
  - Pain [Unknown]
  - Psychological trauma [Unknown]
  - Anxiety [Unknown]
  - Emotional distress [Unknown]

NARRATIVE: CASE EVENT DATE: 20131011
